FAERS Safety Report 14120638 (Version 1)
Quarter: 2017Q4

REPORT INFORMATION
  Report Type: Spontaneous
  Country: US (occurrence: US)
  Receive Date: 20171024
  Receipt Date: 20171024
  Transmission Date: 20180321
  Serious: Yes (Other)
  Sender: FDA-Public Use
  Company Number: US-AKORN PHARMACEUTICALS-2017AKN01238

PATIENT
  Sex: Female
  Weight: 72.11 kg

DRUGS (1)
  1. MYORISAN [Suspect]
     Active Substance: ISOTRETINOIN
     Indication: ACNE CYSTIC
     Dosage: 40 MG, 1X/DAY
     Route: 048
     Dates: start: 20170911, end: 20171012

REACTIONS (5)
  - Mood altered [Unknown]
  - Headache [Unknown]
  - Myalgia [Unknown]
  - Epistaxis [Unknown]
  - Alopecia [Unknown]

NARRATIVE: CASE EVENT DATE: 2017
